FAERS Safety Report 7250855-0 (Version None)
Quarter: 2011Q1

REPORT INFORMATION
  Report Type: 
  Country: None (occurrence: None)
  Receive Date: 20110128
  Receipt Date: 20110121
  Transmission Date: 20110831
  Serious: Yes (Hospitalization)
  Sender: FDA-Public Use
  Company Number: AT-ASTRAZENECA-2011SE03794

PATIENT
  Age: 2 Year
  Sex: Female

DRUGS (1)
  1. SEROQUEL [Suspect]
     Route: 048
     Dates: start: 20100413, end: 20100413

REACTIONS (5)
  - GAIT DISTURBANCE [None]
  - HYPOTENSION [None]
  - ACCIDENTAL DRUG INTAKE BY CHILD [None]
  - DIZZINESS [None]
  - SINUS TACHYCARDIA [None]
